FAERS Safety Report 21372879 (Version 2)
Quarter: 2022Q4

REPORT INFORMATION
  Report Type: Report from Study
  Country: US (occurrence: US)
  Receive Date: 20220924
  Receipt Date: 20221028
  Transmission Date: 20230113
  Serious: Yes (Hospitalization, Other)
  Sender: FDA-Public Use
  Company Number: US-ABBVIE-4128516

PATIENT
  Age: 75 Year
  Sex: Female
  Weight: 68.04 kg

DRUGS (19)
  1. HUMIRA [Suspect]
     Active Substance: ADALIMUMAB
     Indication: Psoriatic arthropathy
     Dosage: CITRATE FREE ?STRENGTH 40 MG
     Route: 058
     Dates: start: 2021, end: 202204
  2. HUMIRA [Suspect]
     Active Substance: ADALIMUMAB
     Dosage: CITRATE FREE ?STRENGTH 40 MG
     Route: 058
     Dates: start: 202205, end: 202208
  3. HUMIRA [Suspect]
     Active Substance: ADALIMUMAB
     Dosage: CITRATE FREE ?STRENGTH 40 MG
     Route: 058
  4. HEPARIN [Concomitant]
     Active Substance: HEPARIN SODIUM
     Indication: Thrombosis
  5. IRON [Concomitant]
     Active Substance: IRON
     Indication: Anaemia
  6. ELIQUIS [Concomitant]
     Active Substance: APIXABAN
     Indication: Thrombosis
     Route: 048
     Dates: start: 20210826
  7. ELIQUIS [Concomitant]
     Active Substance: APIXABAN
     Indication: Thrombosis
     Route: 048
     Dates: start: 20211208, end: 20220825
  8. VITAMIN D3 [Concomitant]
     Active Substance: CHOLECALCIFEROL
     Indication: Vitamin supplementation
  9. RESTASIS [Concomitant]
     Active Substance: CYCLOSPORINE
     Indication: Dry eye
  10. TRAMADOL [Concomitant]
     Active Substance: TRAMADOL
     Indication: Pain
  11. SULFASALAZINE [Concomitant]
     Active Substance: SULFASALAZINE
     Indication: Arthritis
  12. MAGNESIUM [Concomitant]
     Active Substance: MAGNESIUM
     Indication: Menopause
  13. CALCIUM CITRATE [Concomitant]
     Active Substance: CALCIUM CITRATE
     Indication: Product used for unknown indication
  14. BIOTIN [Concomitant]
     Active Substance: BIOTIN
     Indication: Nail psoriasis
  15. Moderna  COVID-19 vaccine [Concomitant]
     Indication: COVID-19 immunisation
     Dosage: THIRD DOSE
     Route: 030
     Dates: start: 20220105, end: 20220105
  16. Moderna  COVID-19 vaccine [Concomitant]
     Indication: COVID-19 immunisation
     Dosage: FIRST DOSE
     Route: 030
     Dates: start: 20210320, end: 20210320
  17. Moderna  COVID-19 vaccine [Concomitant]
     Indication: COVID-19 immunisation
     Dosage: SECOND DOSE
     Route: 030
     Dates: start: 20210424, end: 20210424
  18. magnesium bolus [Concomitant]
     Indication: Anaemia
  19. FOLIC ACID [Concomitant]
     Active Substance: FOLIC ACID
     Indication: Anaemia

REACTIONS (11)
  - Thrombosis [Recovered/Resolved]
  - Anaemia [Not Recovered/Not Resolved]
  - Thrombosis [Unknown]
  - Hip arthroplasty [Unknown]
  - Dyspnoea [Recovered/Resolved]
  - Haemorrhage urinary tract [Recovered/Resolved]
  - Thrombosis [Recovered/Resolved]
  - Pulmonary embolism [Recovered/Resolved]
  - Haemorrhage [Recovered/Resolved]
  - Procedural haemorrhage [Recovered/Resolved]
  - Arthralgia [Recovering/Resolving]

NARRATIVE: CASE EVENT DATE: 20211206
